FAERS Safety Report 5278075-X (Version None)
Quarter: 2007Q1

REPORT INFORMATION
  Report Type: 
  Country: None (occurrence: None)
  Receive Date: 20070321
  Receipt Date: 20070309
  Transmission Date: 20070707
  Serious: Yes (Other)
  Sender: FDA-Public Use
  Company Number: 2007SP003300

PATIENT
  Age: 45 Year
  Sex: Male
  Weight: 73 kg

DRUGS (3)
  1. CLARITIN [Suspect]
     Indication: RHINITIS ALLERGIC
     Dosage: 10 MG; PO
     Route: 048
     Dates: start: 20070204, end: 20070215
  2. IPD (SUPLATAST TOSILATE) [Suspect]
     Indication: RHINITIS ALLERGIC
     Dosage: 300 MG; PO
     Route: 048
     Dates: start: 20070129, end: 20070215
  3. ARTIST (CON.) [Concomitant]

REACTIONS (3)
  - ALCOHOL USE [None]
  - ARRHYTHMIA [None]
  - ATRIAL FIBRILLATION [None]
